FAERS Safety Report 4375814-7 (Version None)
Quarter: 2004Q2

REPORT INFORMATION
  Report Type: 
  Country: None (occurrence: None)
  Receive Date: 20040607
  Receipt Date: 20040528
  Transmission Date: 20050107
  Serious: Yes (Other)
  Sender: FDA-Public Use
  Company Number: 2004213924AU

PATIENT
  Age: 25 Year
  Sex: Female
  Weight: 54 kg

DRUGS (1)
  1. DEPO-PROVERA [Suspect]
     Indication: CONTRACEPTION
     Dosage: 150 MG, SINGLE, INJ, INTRAMUSCULAR
     Route: 030
     Dates: start: 20040415, end: 20040415

REACTIONS (5)
  - CELLULITIS [None]
  - INJECTION SITE ABSCESS [None]
  - INJECTION SITE ULCER [None]
  - PURULENT DISCHARGE [None]
  - SWELLING [None]
